FAERS Safety Report 20489486 (Version 2)
Quarter: 2022Q1

REPORT INFORMATION
  Report Type: Spontaneous
  Country: FR (occurrence: FR)
  Receive Date: 20220218
  Receipt Date: 20220228
  Transmission Date: 20220423
  Serious: Yes (Death, Other)
  Sender: FDA-Public Use
  Company Number: None

PATIENT
  Age: 76 Year
  Sex: Male
  Weight: 75 kg

DRUGS (1)
  1. VORICONAZOLE [Suspect]
     Active Substance: VORICONAZOLE
     Indication: Aspergillus infection
     Dosage: 600 MG, 1X/DAY
     Route: 042
     Dates: start: 20210926, end: 202112

REACTIONS (2)
  - Arthropathy [Fatal]
  - Fluorosis [Not Recovered/Not Resolved]

NARRATIVE: CASE EVENT DATE: 20211101
